FAERS Safety Report 7119161-9 (Version None)
Quarter: 2010Q4

REPORT INFORMATION
  Report Type: 
  Country: None (occurrence: None)
  Receive Date: 20101123
  Receipt Date: 20101116
  Transmission Date: 20110411
  Serious: Yes (Hospitalization, Other)
  Sender: FDA-Public Use
  Company Number: JP-ABBOTT-10P-087-0682472-00

PATIENT
  Sex: Male
  Weight: 55 kg

DRUGS (23)
  1. KALETRA [Suspect]
     Indication: HIV INFECTION
     Route: 048
     Dates: start: 20090415, end: 20090608
  2. DEPAKENE [Interacting]
     Indication: CONVULSION
     Route: 048
     Dates: start: 20090421, end: 20090508
  3. DEPAKENE [Interacting]
     Route: 048
     Dates: start: 20090501, end: 20090501
  4. DEPAKENE [Interacting]
     Route: 048
     Dates: start: 20090501, end: 20090501
  5. DEPAKENE [Interacting]
     Route: 048
     Dates: start: 20090101, end: 20090101
  6. DEPAKENE [Interacting]
     Route: 048
     Dates: start: 20090601
  7. GABAPENTIN [Concomitant]
     Indication: CONVULSION
     Route: 048
  8. TRIMETHOPRIM + SULFAMETHOXAZOLE [Concomitant]
     Indication: PRODUCT USED FOR UNKNOWN INDICATION
  9. STEROID [Concomitant]
     Indication: PRODUCT USED FOR UNKNOWN INDICATION
  10. GANCICLOVIR [Concomitant]
     Indication: ENCEPHALITIS CYTOMEGALOVIRUS
  11. FOSCARNET [Concomitant]
     Indication: ENCEPHALITIS CYTOMEGALOVIRUS
  12. LAMIVUDINE [Concomitant]
     Indication: HIV INFECTION
     Dates: start: 20090415, end: 20090818
  13. TENOFOVIR DISOPROXIL FUMARATE [Concomitant]
     Indication: HIV INFECTION
     Route: 048
     Dates: start: 20090415, end: 20090818
  14. AMLODIPINE BESYLATE [Concomitant]
     Indication: HYPERTENSION
     Route: 048
     Dates: start: 20090415, end: 20090810
  15. POTASSIUM GLUCONATE TAB [Concomitant]
     Indication: HYPOKALAEMIA
     Dates: start: 20090415, end: 20090813
  16. SODIUM GUALENATE HYDRATE/SODIUM BICARBONATE [Concomitant]
     Indication: ORAL MUCOSA EROSION
     Dates: start: 20090420, end: 20090614
  17. SODIUM ALGINATE [Concomitant]
     Indication: GASTRIC ULCER
     Route: 048
     Dates: start: 20090422, end: 20090716
  18. ANTIBIOTICS-RESISTANT LACTIC ACID BACTERIAE [Concomitant]
     Indication: DIARRHOEA
     Route: 048
     Dates: start: 20090428, end: 20090818
  19. DIAPHENYLSULFONE [Concomitant]
     Indication: ANTIFUNGAL PROPHYLAXIS
     Route: 048
     Dates: start: 20090430, end: 20090726
  20. CEFEPIME DIHYDROCHLORIDE HYDRATE [Concomitant]
     Indication: PNEUMONIA
     Route: 042
     Dates: start: 20090430, end: 20090515
  21. TRANDOLAPRIL [Concomitant]
     Indication: HYPERTENSION
     Route: 048
     Dates: start: 20090521, end: 20090527
  22. AZITHROMYCIN [Concomitant]
     Indication: OPPORTUNISTIC INFECTION PROPHYLAXIS
     Route: 048
     Dates: start: 20090518, end: 20090726
  23. FOSAMPRENAVIR [Concomitant]
     Indication: HIV INFECTION
     Dates: start: 20090609, end: 20090818

REACTIONS (4)
  - CONVULSION [None]
  - DRUG INEFFECTIVE [None]
  - DRUG INTERACTION [None]
  - DRUG LEVEL DECREASED [None]
